FAERS Safety Report 19167091 (Version 3)
Quarter: 2021Q3

REPORT INFORMATION
  Report Type: Report from Study
  Country: None (occurrence: US)
  Receive Date: 20210422
  Receipt Date: 20210808
  Transmission Date: 20211014
  Serious: No
  Sender: FDA-Public Use
  Company Number: US-ABBVIE-21K-163-3869279-00

PATIENT
  Sex: Male

DRUGS (5)
  1. IMBRUVICA [Suspect]
     Active Substance: IBRUTINIB
     Route: 048
     Dates: start: 201403
  2. IMBRUVICA [Suspect]
     Active Substance: IBRUTINIB
     Indication: CHRONIC LYMPHOCYTIC LEUKAEMIA
     Route: 048
     Dates: start: 20140401
  3. IMBRUVICA [Suspect]
     Active Substance: IBRUTINIB
     Dosage: 280MG CAPSULES EVERY OTHER DAY AND 420MG CAPSULE ON THE ALTERNATING DAYS.
     Route: 048
  4. IMBRUVICA [Suspect]
     Active Substance: IBRUTINIB
     Dosage: 280MG CAPSULES EVERY OTHER DAY AND 420MG CAPSULE ON THE ALTERNATING DAYS.
     Route: 048
  5. IMBRUVICA [Suspect]
     Active Substance: IBRUTINIB
     Route: 048

REACTIONS (1)
  - Lymphadenopathy [Recovering/Resolving]
